FAERS Safety Report 16806721 (Version 1)
Quarter: 2019Q3

REPORT INFORMATION
  Report Type: Spontaneous
  Country: GB (occurrence: GB)
  Receive Date: 20190913
  Receipt Date: 20190913
  Transmission Date: 20191005
  Serious: Yes (Hospitalization)
  Sender: FDA-Public Use
  Company Number: GB-MYLANLABS-2019M1085085

PATIENT
  Age: 74 Year
  Sex: Male
  Weight: 80.7 kg

DRUGS (10)
  1. ENOXAPARIN SODIUM. [Concomitant]
     Active Substance: ENOXAPARIN SODIUM
     Dosage: UNK
  2. LEVOBUPIVACAINE HYDROCHLORIDE [Concomitant]
     Active Substance: LEVOBUPIVACAINE HYDROCHLORIDE
     Dosage: UNK
  3. PARACETAMOL [Concomitant]
     Active Substance: ACETAMINOPHEN
     Dosage: UNK
  4. PABRINEX                           /00041801/ [Concomitant]
     Dosage: UNK
  5. DIAMORPHINE [Concomitant]
     Active Substance: DIAMORPHINE
     Dosage: UNK
  6. LEVOFLOXACIN. [Suspect]
     Active Substance: LEVOFLOXACIN
     Indication: PNEUMONIA
     Dosage: 1000 MILLIGRAM, QD
     Route: 042
     Dates: start: 20190323, end: 20190325
  7. OMEPRAZOLE. [Concomitant]
     Active Substance: OMEPRAZOLE
     Dosage: UNK
  8. ONDANSETRON [Concomitant]
     Active Substance: ONDANSETRON
     Dosage: UNK
  9. DOXAZOSIN [Concomitant]
     Active Substance: DOXAZOSIN MESYLATE
     Dosage: UNK
  10. METARAMINOL [Concomitant]
     Active Substance: METARAMINOL
     Dosage: UNK

REACTIONS (4)
  - Confusional state [Unknown]
  - Aggression [Unknown]
  - Agitation [Recovered/Resolved]
  - Delirium [Recovering/Resolving]

NARRATIVE: CASE EVENT DATE: 20190323
